APPROVED DRUG PRODUCT: TRIPROLIDINE AND PSEUDOEPHEDRINE
Active Ingredient: PSEUDOEPHEDRINE HYDROCHLORIDE; TRIPROLIDINE HYDROCHLORIDE
Strength: 60MG;2.5MG
Dosage Form/Route: TABLET;ORAL
Application: A088117 | Product #001
Applicant: WEST WARD PHARMACEUTICAL CORP
Approved: Apr 19, 1983 | RLD: No | RS: No | Type: DISCN